FAERS Safety Report 15034273 (Version 3)
Quarter: 2019Q4

REPORT INFORMATION
  Report Type: Other
  Country: GB (occurrence: GB)
  Receive Date: 20180620
  Receipt Date: 20191112
  Transmission Date: 20200122
  Serious: Yes (Death, Hospitalization, Other)
  Sender: FDA-Public Use
  Company Number: GB-MACLEODS PHARMACEUTICALS US LTD-MAC2018014295

PATIENT

DRUGS (3)
  1. ASPIRIN. [Suspect]
     Active Substance: ASPIRIN
     Indication: PRODUCT USED FOR UNKNOWN INDICATION
     Dosage: 75 MILLIGRAM TABLET, QD
     Route: 048
     Dates: end: 20180519
  2. ESCITALOPRAM [Suspect]
     Active Substance: ESCITALOPRAM OXALATE
     Indication: DEPRESSION
     Dosage: 20 MILLIGRAM, QD
     Route: 048
     Dates: end: 20180519
  3. DIHYDROCODEINE [Concomitant]
     Active Substance: DIHYDROCODEINE
     Indication: BACK PAIN
     Dosage: 120 MILLIGRAM, QD
     Route: 048

REACTIONS (4)
  - Gastric ulcer [Fatal]
  - Gastric ulcer haemorrhage [Fatal]
  - Gastrointestinal haemorrhage [Fatal]
  - Gastrointestinal pain [Fatal]

NARRATIVE: CASE EVENT DATE: 201805
